FAERS Safety Report 4817067-9 (Version None)
Quarter: 2005Q4

REPORT INFORMATION
  Report Type: 
  Country: None (occurrence: None)
  Receive Date: 20051101
  Receipt Date: 20051021
  Transmission Date: 20060501
  Serious: Yes (Other)
  Sender: FDA-Public Use
  Company Number: GB-BRISTOL-MYERS SQUIBB COMPANY-13153580

PATIENT
  Age: 70 Year
  Sex: Male

DRUGS (8)
  1. QUESTRAN [Suspect]
     Route: 048
  2. AMITRIPTYLINE HCL [Concomitant]
  3. LANSOPRAZOLE [Concomitant]
  4. NITRAZEPAM [Concomitant]
  5. SIMVASTATIN [Concomitant]
  6. ASPIRIN [Concomitant]
  7. TEGRETOL [Concomitant]
     Indication: TRIGEMINAL NEURALGIA
  8. ACECLOFENAC [Concomitant]

REACTIONS (1)
  - HYPONATRAEMIA [None]
